FAERS Safety Report 5618239-6 (Version None)
Quarter: 2008Q1

REPORT INFORMATION
  Report Type: 
  Country: None (occurrence: None)
  Receive Date: 20080204
  Receipt Date: 20080121
  Transmission Date: 20080703
  Serious: No
  Sender: FDA-Public Use
  Company Number: 02100-EUR-07-0099

PATIENT
  Age: 78 Year
  Sex: Male

DRUGS (4)
  1. PLETAL [Suspect]
     Indication: INTERMITTENT CLAUDICATION
     Dosage: 100 MG, BID
     Dates: start: 20070613, end: 20070621
  2. ACETYLSALICYLIC ACID SRT [Suspect]
     Dosage: 100 MG, QD, ORAL
     Route: 048
  3. AMLODIPINE [Concomitant]
  4. BROMOCRIPTINE MESYLATE [Concomitant]

REACTIONS (2)
  - GASTRIC ULCER [None]
  - MELAENA [None]
